FAERS Safety Report 13395578 (Version 3)
Quarter: 2017Q3

REPORT INFORMATION
  Report Type: Report from Study
  Country: US (occurrence: US)
  Receive Date: 20170403
  Receipt Date: 20170808
  Transmission Date: 20171127
  Serious: Yes (Hospitalization, Other)
  Sender: FDA-Public Use
  Company Number: US-AMGEN-USASP2017047429

PATIENT
  Age: 63 Year
  Sex: Male

DRUGS (4)
  1. ENBREL [Suspect]
     Active Substance: ETANERCEPT
     Dosage: 50 MG,  TWICE MONTHLY
     Route: 065
     Dates: end: 201608
  2. ORENCIA [Concomitant]
     Active Substance: ABATACEPT
  3. ENBREL [Suspect]
     Active Substance: ETANERCEPT
     Indication: RHEUMATOID ARTHRITIS
     Dosage: 50 MG, QWK
     Route: 065
  4. ENBREL [Suspect]
     Active Substance: ETANERCEPT
     Dosage: UNK
     Route: 065

REACTIONS (14)
  - Staphylococcal infection [Recovered/Resolved]
  - Fatigue [Unknown]
  - Spinal column stenosis [Unknown]
  - Sepsis [Recovered/Resolved]
  - Spinal operation [Unknown]
  - Aggression [Unknown]
  - Hydrocele [Unknown]
  - Hospitalisation [Unknown]
  - Rheumatoid arthritis [Unknown]
  - Confusional state [Unknown]
  - Weight decreased [Unknown]
  - Hypoacusis [Unknown]
  - Dizziness [Unknown]
  - Off label use [Unknown]

NARRATIVE: CASE EVENT DATE: 201608
